FAERS Safety Report 7656228-0 (Version None)
Quarter: 2011Q3

REPORT INFORMATION
  Report Type: 
  Country: None (occurrence: None)
  Receive Date: 20110801
  Receipt Date: 20110728
  Transmission Date: 20111222
  Serious: Yes (Other)
  Sender: FDA-Public Use
  Company Number: GB-ACCORD-010105

PATIENT
  Age: 45 Year
  Sex: Male
  Weight: 74 kg

DRUGS (5)
  1. AMITRIPTYLINE HYDROCHLORIDE [Concomitant]
  2. ACETAMINOPHEN AND CODEINE PHOSPHATE [Concomitant]
  3. LANSOPRAZOLE [Concomitant]
  4. DICLOFENAC SODIUM [Concomitant]
  5. TOPIRAMATE [Suspect]
     Indication: PRODUCT USED FOR UNKNOWN INDICATION

REACTIONS (2)
  - FURUNCLE [None]
  - RASH [None]
